FAERS Safety Report 7906900-X (Version None)
Quarter: 2011Q4

REPORT INFORMATION
  Report Type: 
  Country: None (occurrence: None)
  Receive Date: 20111110
  Receipt Date: 20111101
  Transmission Date: 20120403
  Serious: Yes (Hospitalization)
  Sender: FDA-Public Use
  Company Number: US-ABBOTT-11P-163-0870709-00

PATIENT
  Sex: Female

DRUGS (7)
  1. TRAZODONE HCL [Concomitant]
     Indication: INSOMNIA
     Dosage: NOT REPORTED
  2. MULTI-VITAMIN [Concomitant]
     Indication: VITAMIN SUPPLEMENTATION
  3. HUMIRA [Suspect]
     Indication: CROHN'S DISEASE
     Route: 058
     Dates: start: 20080101
  4. LITHIUM [Concomitant]
     Indication: BIPOLAR DISORDER
     Dosage: NOT REPORTED
  5. PROZAC [Concomitant]
     Indication: DEPRESSION
     Dosage: NOT REPORTED
  6. KLONOPIN [Concomitant]
     Indication: ANXIETY
     Dosage: NOT REPORTED
  7. AMLODIPINE [Concomitant]
     Indication: HYPERTENSION
     Dosage: NOT REPORTED

REACTIONS (9)
  - DIZZINESS [None]
  - ASTHENIA [None]
  - DYSPNOEA [None]
  - PHOTOSENSITIVITY REACTION [None]
  - PERICARDIAL EFFUSION [None]
  - FALL [None]
  - ALOPECIA [None]
  - PNEUMONIA [None]
  - PULMONARY OEDEMA [None]
